FAERS Safety Report 11693647 (Version 3)
Quarter: 2015Q4

REPORT INFORMATION
  Report Type: Spontaneous
  Country: FR (occurrence: FR)
  Receive Date: 20151103
  Receipt Date: 20151116
  Transmission Date: 20160304
  Serious: Yes (Death, Hospitalization)
  Sender: FDA-Public Use
  Company Number: FR-009507513-1511FRA000648

PATIENT
  Age: 78 Year
  Sex: Female

DRUGS (6)
  1. POLYETHYLENE GLYCOL 3350. [Suspect]
     Active Substance: POLYETHYLENE GLYCOL 3350
     Indication: PRODUCT USED FOR UNKNOWN INDICATION
     Dosage: 2 DF, QD
  2. TRIMEBUTINE MALEATE [Suspect]
     Active Substance: TRIMEBUTINE MALEATE
     Dosage: 1 DF, QD
  3. HYDROCHLOROTHIAZIDE (+) IRBESARTAN [Suspect]
     Active Substance: HYDROCHLOROTHIAZIDE\IRBESARTAN
     Dosage: 1 DF =150MG/12.5MG 1 TABLET
     Route: 048
  4. SERC [Suspect]
     Active Substance: BETAHISTINE HYDROCHLORIDE
     Dosage: 1 DF, TID
  5. INEXIUM (ESOMEPRAZOLE MAGNESIUM) [Suspect]
     Active Substance: ESOMEPRAZOLE MAGNESIUM
     Dosage: 1 DF, QD
  6. CALCIUM CARBONATE. [Suspect]
     Active Substance: CALCIUM CARBONATE
     Dosage: 1 DF, UNK

REACTIONS (2)
  - Acute respiratory distress syndrome [Fatal]
  - Pancreatitis necrotising [Fatal]
